FAERS Safety Report 8267894-3 (Version None)
Quarter: 2012Q2

REPORT INFORMATION
  Report Type: 
  Country: None (occurrence: None)
  Receive Date: 20120404
  Receipt Date: 20120320
  Transmission Date: 20120825
  Serious: Yes (Death, Hospitalization)
  Sender: FDA-Public Use
  Company Number: 2012MA003889

PATIENT
  Age: 73 Year
  Sex: Female

DRUGS (4)
  1. LANOXIN [Concomitant]
  2. BISOLVON [Concomitant]
  3. DIAZEPAM [Suspect]
     Dosage: 15 MG;;PO
     Route: 048
     Dates: start: 19761103, end: 19761106
  4. LASIX [Concomitant]

REACTIONS (1)
  - RESPIRATORY DEPRESSION [None]
